FAERS Safety Report 12732946 (Version 1)
Quarter: 2016Q3

REPORT INFORMATION
  Report Type: Spontaneous
  Country: US (occurrence: US)
  Receive Date: 20160912
  Receipt Date: 20160912
  Transmission Date: 20161109
  Serious: Yes (Other)
  Sender: FDA-Public Use
  Company Number: US-JNJFOC-20160711585

PATIENT
  Age: 76 Year
  Sex: Female
  Weight: 78.02 kg

DRUGS (12)
  1. METOPROLOL. [Concomitant]
     Active Substance: METOPROLOL
     Route: 065
  2. PRAMIPEXOLE DIHYDROCHLORIDE. [Concomitant]
     Active Substance: PRAMIPEXOLE DIHYDROCHLORIDE
     Route: 048
  3. XARELTO [Suspect]
     Active Substance: RIVAROXABAN
     Indication: ATRIAL FIBRILLATION
     Route: 048
     Dates: start: 20140429, end: 20140613
  4. ACYCLOVIR. [Concomitant]
     Active Substance: ACYCLOVIR
     Route: 048
  5. FENOFIBRATE. [Concomitant]
     Active Substance: FENOFIBRATE
     Route: 048
  6. ASPIRIN. [Concomitant]
     Active Substance: ASPIRIN
     Route: 048
  7. FLECAINIDE ACETATE. [Concomitant]
     Active Substance: FLECAINIDE ACETATE
     Route: 048
  8. METHSCOPOLAMINE BROMIDE. [Concomitant]
     Active Substance: METHSCOPOLAMINE BROMIDE
     Route: 048
  9. RANITIDINE. [Concomitant]
     Active Substance: RANITIDINE
     Route: 065
  10. ESTRADIOL. [Concomitant]
     Active Substance: ESTRADIOL
     Route: 061
  11. XARELTO [Suspect]
     Active Substance: RIVAROXABAN
     Indication: CEREBROVASCULAR ACCIDENT PROPHYLAXIS
     Route: 048
     Dates: start: 20140429, end: 20140613
  12. SIMVASTATIN. [Concomitant]
     Active Substance: SIMVASTATIN
     Route: 048

REACTIONS (1)
  - Rectal haemorrhage [Unknown]

NARRATIVE: CASE EVENT DATE: 20140613
